FAERS Safety Report 22142753 (Version 1)
Quarter: 2023Q1

REPORT INFORMATION
  Report Type: Spontaneous
  Country: CN (occurrence: CN)
  Receive Date: 20230327
  Receipt Date: 20230327
  Transmission Date: 20230418
  Serious: Yes (Other)
  Sender: FDA-Public Use
  Company Number: CN-SA-SAC20230324000459

PATIENT
  Age: 81 Year
  Sex: Male

DRUGS (3)
  1. ENOXAPARIN SODIUM [Suspect]
     Active Substance: ENOXAPARIN SODIUM
     Indication: Coronary artery disease
     Dosage: UNK
     Route: 058
  2. NICORANDIL [Suspect]
     Active Substance: NICORANDIL
     Indication: Coronary artery disease
     Dosage: 5 MG, TID
     Route: 048
  3. HERBALS [Suspect]
     Active Substance: HERBALS
     Indication: Coronary artery disease
     Dosage: UNKNOWN

REACTIONS (1)
  - Arteriospasm coronary [Unknown]
